FAERS Safety Report 4887891-5 (Version None)
Quarter: 2006Q1

REPORT INFORMATION
  Report Type: 
  Country: None (occurrence: None)
  Receive Date: 20060119
  Receipt Date: 20060105
  Transmission Date: 20060701
  Serious: Yes (Other)
  Sender: FDA-Public Use
  Company Number: 220717

PATIENT
  Age: 54 Year
  Sex: Female
  Weight: 70.7 kg

DRUGS (15)
  1. TRASTUZUMAB (TRASTUZUMAB) PWDR + SOLVENT, INFUSION SOLN, 440MG [Suspect]
     Dosage: 272, SINGLE, INTRAVENOUS
     Dates: start: 20050517, end: 20050517
  2. HERCEPTIN [Suspect]
     Indication: BREAST CANCER
     Dosage: 136, 1/WEEK, INTRAVENOUS
     Route: 042
     Dates: start: 20050517, end: 20050804
  3. DOXORUBICIN HCL [Suspect]
     Indication: BREAST CANCER
  4. CYCLOPHOSPHAMIDE [Suspect]
     Indication: BREAST CANCER
  5. PACLITAXEL [Suspect]
     Indication: BREAST CANCER
  6. TOPROL-XL [Concomitant]
  7. ALLEGRA [Concomitant]
  8. SINGULAIR [Concomitant]
  9. AMBIEN [Concomitant]
  10. CALCIUM (CALCIUM NOS) [Concomitant]
  11. MULTIVITAMIN (MULTIVITAMINS NOS) [Concomitant]
  12. NASACORT [Concomitant]
  13. LEXAPRO [Concomitant]
  14. PEPCID [Concomitant]
  15. XANAX [Concomitant]

REACTIONS (1)
  - POLYMYOSITIS [None]
